FAERS Safety Report 9855542 (Version 2)
Quarter: 2014Q1

REPORT INFORMATION
  Report Type: Report from Study
  Country: RO (occurrence: RO)
  Receive Date: 20140130
  Receipt Date: 20140312
  Transmission Date: 20141002
  Serious: Yes (Hospitalization, Other)
  Sender: FDA-Public Use
  Company Number: RO-ASTELLAS-2014US000880

PATIENT
  Age: 62 Year
  Sex: Male

DRUGS (5)
  1. ERLOTINIB TABLET [Suspect]
     Indication: LUNG NEOPLASM MALIGNANT
     Dosage: 150 MG, UID/QD
     Route: 048
     Dates: start: 20130711
  2. TEOTARD [Concomitant]
     Indication: DYSPNOEA
     Dosage: 60 MG, UID/QD
     Route: 048
     Dates: start: 20130218
  3. TRAMADOL [Concomitant]
     Indication: CHEST PAIN
     Dosage: 150 MG, UID/QD
     Route: 030
     Dates: start: 20131203
  4. OMERAN [Concomitant]
     Indication: ABDOMINAL PAIN UPPER
     Dosage: 20 MG, UID/QD
     Route: 048
     Dates: start: 20131203
  5. KETOPROFEN [Concomitant]
     Indication: CHEST PAIN
     Dosage: 200 MG, UID/QD
     Route: 048
     Dates: start: 20131203

REACTIONS (4)
  - Anaemia [Recovering/Resolving]
  - Chest pain [Recovering/Resolving]
  - Dyspnoea exertional [Recovering/Resolving]
  - Decreased appetite [Unknown]
